FAERS Safety Report 20977935 (Version 1)
Quarter: 2022Q2

REPORT INFORMATION
  Report Type: Spontaneous
  Country: PT (occurrence: PT)
  Receive Date: 20220618
  Receipt Date: 20220618
  Transmission Date: 20220720
  Serious: Yes (Other)
  Sender: FDA-Public Use
  Company Number: PT-SA-2022SA227480

PATIENT
  Age: 65 Year
  Sex: Female

DRUGS (1)
  1. AFLIBERCEPT [Suspect]
     Active Substance: AFLIBERCEPT
     Indication: Diabetic retinal oedema
     Dosage: 2 MG
     Route: 031
     Dates: start: 2018, end: 20200807

REACTIONS (1)
  - Vitreous opacities [Unknown]

NARRATIVE: CASE EVENT DATE: 20200821
